FAERS Safety Report 4639247-8 (Version None)
Quarter: 2005Q2

REPORT INFORMATION
  Report Type: 
  Country: None (occurrence: None)
  Receive Date: 20050419
  Receipt Date: 20050413
  Transmission Date: 20051028
  Serious: Yes (Other)
  Sender: FDA-Public Use
  Company Number: PHBS2005CA05281

PATIENT
  Sex: 0

DRUGS (1)
  1. ZELNORM [Suspect]
     Dosage: 1 TABLET, ONCE/SINGLE
     Route: 048

REACTIONS (1)
  - DIARRHOEA HAEMORRHAGIC [None]
